FAERS Safety Report 6294236-5 (Version None)
Quarter: 2009Q3

REPORT INFORMATION
  Report Type: 
  Country: None (occurrence: None)
  Receive Date: 20090803
  Receipt Date: 20090327
  Transmission Date: 20100115
  Serious: No
  Sender: FDA-Public Use
  Company Number: A0775871A

PATIENT
  Age: 59 Year
  Sex: Male

DRUGS (1)
  1. NICORETTE (MINT) [Suspect]
     Dates: start: 20090322, end: 20090325

REACTIONS (2)
  - DIZZINESS [None]
  - HEART RATE IRREGULAR [None]
